FAERS Safety Report 14799077 (Version 1)
Quarter: 2018Q2

REPORT INFORMATION
  Report Type: Spontaneous
  Country: US (occurrence: US)
  Receive Date: 20180416
  Receipt Date: 20180416
  Transmission Date: 20180711
  Serious: No
  Sender: FDA-Public Use
  Company Number: None

PATIENT
  Age: 43 Year
  Sex: Female

DRUGS (1)
  1. ENTECAVIR TAB 0.5MG [Suspect]
     Active Substance: ENTECAVIR

REACTIONS (3)
  - Memory impairment [None]
  - Drug dose omission [None]
  - Treatment noncompliance [None]

NARRATIVE: CASE EVENT DATE: 20180416
